FAERS Safety Report 5765144-0 (Version None)
Quarter: 2008Q2

REPORT INFORMATION
  Report Type: 
  Country: None (occurrence: None)
  Receive Date: 20080611
  Receipt Date: 20080603
  Transmission Date: 20081010
  Serious: Yes (Hospitalization)
  Sender: FDA-Public Use
  Company Number: NL-TEVA-172132ISR

PATIENT
  Sex: Male
  Weight: 85 kg

DRUGS (8)
  1. HYDROCHLOROTHIAZIDE TABLETS, 12.5 MG [Suspect]
     Indication: HYPERTENSION
     Dates: start: 20080426, end: 20080426
  2. HOMATROPINE [Concomitant]
  3. PREDNISOLONE ACETATE [Concomitant]
  4. CANDESARTAN CILEXETIL [Concomitant]
  5. TIMOLOL MALEATE [Concomitant]
     Dates: start: 20080424
  6. LOSEC MUPS HP [Concomitant]
  7. PREDNISOLONE PIVALATE [Concomitant]
     Dates: end: 20080428
  8. PAROXETINE HCL [Concomitant]

REACTIONS (2)
  - HYPERTENSION [None]
  - OEDEMA PERIPHERAL [None]
